FAERS Safety Report 5853702-4 (Version None)
Quarter: 2008Q3

REPORT INFORMATION
  Report Type: 
  Country: None (occurrence: None)
  Receive Date: 20080822
  Receipt Date: 20080814
  Transmission Date: 20090109
  Serious: Yes (Hospitalization)
  Sender: FDA-Public Use
  Company Number: PHBS2008US05422

PATIENT
  Age: 65 Year
  Sex: Female

DRUGS (1)
  1. GLEEVEC [Suspect]
     Indication: GASTROINTESTINAL STROMAL TUMOUR
     Dosage: 400MG

REACTIONS (12)
  - ABDOMINAL OPERATION [None]
  - CONSTIPATION [None]
  - DEHYDRATION [None]
  - GASTROINTESTINAL STROMAL TUMOUR [None]
  - HYPOGLYCAEMIA [None]
  - INSULIN-LIKE GROWTH FACTOR [None]
  - LETHARGY [None]
  - METASTASES TO PERITONEUM [None]
  - NAUSEA [None]
  - PARANEOPLASTIC SYNDROME [None]
  - THERAPEUTIC RESPONSE DECREASED [None]
  - VOMITING [None]
